FAERS Safety Report 13872789 (Version 19)
Quarter: 2020Q3

REPORT INFORMATION
  Report Type: Report from Study
  Country: None (occurrence: FR)
  Receive Date: 20170816
  Receipt Date: 20200729
  Transmission Date: 20201104
  Serious: Yes (Hospitalization, Other)
  Sender: FDA-Public Use
  Company Number: FR-ABBVIE-17P-056-2041692-00

PATIENT
  Age: 69 Year
  Sex: Male
  Weight: 83 kg

DRUGS (46)
  1. ALLOPURINOL. [Concomitant]
     Active Substance: ALLOPURINOL
     Indication: TUMOUR LYSIS SYNDROME
     Route: 048
     Dates: start: 20160923, end: 201610
  2. TAZOCILLINE [Concomitant]
     Active Substance: PIPERACILLIN SODIUM\TAZOBACTAM SODIUM
     Route: 042
     Dates: start: 20170827, end: 20170918
  3. INEXIUM [Concomitant]
     Active Substance: ESOMEPRAZOLE
     Indication: PROPHYLAXIS OF NAUSEA AND VOMITING
     Route: 048
     Dates: start: 20170803
  4. LANSOYL [Concomitant]
     Active Substance: MINERAL OIL
     Indication: CONSTIPATION
     Route: 048
     Dates: start: 20160927, end: 20160927
  5. XANAX [Concomitant]
     Active Substance: ALPRAZOLAM
     Indication: ANXIETY
     Route: 048
     Dates: start: 20160928, end: 20160929
  6. LASILIX [Concomitant]
     Active Substance: FUROSEMIDE
     Indication: OEDEMA PERIPHERAL
     Route: 048
     Dates: start: 20171201
  7. VENETOCLAX. [Suspect]
     Active Substance: VENETOCLAX
     Dosage: DOSE (200MG) PRIOR TO HAEMORRHOIDS THROMBOSED 18DEC15, (200MG) HERPES ZOSTER 12JUL17
     Route: 048
  8. TAZOCILLINE [Concomitant]
     Active Substance: PIPERACILLIN SODIUM\TAZOBACTAM SODIUM
     Indication: PNEUMONIA
     Route: 042
     Dates: start: 20161020
  9. SKENAN [Concomitant]
     Active Substance: MORPHINE SULFATE
     Indication: CHEST PAIN
     Route: 048
     Dates: start: 20161019
  10. TIORFAN [Concomitant]
     Active Substance: RACECADOTRIL
     Indication: DIARRHOEA
     Route: 048
     Dates: start: 201610, end: 201610
  11. LASILIX [Concomitant]
     Active Substance: FUROSEMIDE
     Route: 048
     Dates: start: 20170920, end: 20171114
  12. HYDREA [Concomitant]
     Active Substance: HYDROXYUREA
     Indication: LEUKOCYTOSIS
     Route: 048
     Dates: start: 20171201
  13. VENETOCLAX. [Suspect]
     Active Substance: VENETOCLAX
     Indication: ACUTE MYELOID LEUKAEMIA
     Dosage: RECENT DOSE (50MG) PRIOR TO TLS + INTERMITTENT THROMBOCYTOPENIA 27SEP16
     Route: 048
     Dates: start: 20160926
  14. VENETOCLAX. [Suspect]
     Active Substance: VENETOCLAX
     Dosage: (200MG) 1ST EPIS SEPSIS+THROMBOCYTOPENIA 02AUG17,(200MG) 2ND EPIS OF SEPTIC SHOCK 26AUG17
     Route: 048
  15. IDASANUTLIN. [Suspect]
     Active Substance: IDASANUTLIN
     Dosage: DOSE (400MG) PRIOR TO 1ST SEPTIC SHOCK 24JUL17,(200MG) PRIOR TO THROMBOCYTOPENIA 25JUL17
     Route: 048
  16. IDASANUTLIN. [Suspect]
     Active Substance: IDASANUTLIN
     Dosage: RECENT DOSE (200MG) PRIOR TO 2ND THROMBOCYTOPENIA 26AUG17
     Route: 048
  17. ALLOPURINOL. [Concomitant]
     Active Substance: ALLOPURINOL
     Route: 048
     Dates: start: 20171115
  18. ZELITREX [Concomitant]
     Active Substance: VALACYCLOVIR HYDROCHLORIDE
     Indication: VIRAL INFECTION
     Route: 048
     Dates: start: 20161004, end: 201610
  19. TAZOCILLINE [Concomitant]
     Active Substance: PIPERACILLIN SODIUM\TAZOBACTAM SODIUM
     Indication: SEPTIC SHOCK
     Route: 042
     Dates: start: 20170803, end: 20170817
  20. IMOVANE [Concomitant]
     Active Substance: ZOPICLONE
     Indication: INSOMNIA
     Route: 048
     Dates: start: 20160926, end: 20161004
  21. VORICONAZOL [Concomitant]
     Active Substance: VORICONAZOLE
     Indication: PNEUMONIA
     Route: 042
     Dates: start: 20161024, end: 20161202
  22. CIPROFLOXACINE [Concomitant]
     Active Substance: CIPROFLOXACIN
     Route: 048
     Dates: start: 20171124, end: 20171127
  23. SPASFON [Concomitant]
     Indication: PRODUCT USED FOR UNKNOWN INDICATION
     Route: 048
     Dates: start: 20170803, end: 201708
  24. WELLVONE [Concomitant]
     Active Substance: ATOVAQUONE
     Indication: BACTERIAL INFECTION
     Route: 048
     Dates: start: 20160928, end: 201610
  25. AUGMENTIN [Concomitant]
     Active Substance: AMOXICILLIN\CLAVULANATE POTASSIUM
     Indication: PHLEBITIS
     Route: 048
     Dates: start: 20170720, end: 20170725
  26. IMODIUM [Concomitant]
     Active Substance: LOPERAMIDE HYDROCHLORIDE
     Route: 048
     Dates: start: 20160928, end: 20161004
  27. IDASANUTLIN. [Suspect]
     Active Substance: IDASANUTLIN
     Dosage: RECENT DOSE (200MG) PRIOR TO 2ND THROMBOCYTOPENIA 06DEC16
     Route: 048
  28. IDASANUTLIN. [Suspect]
     Active Substance: IDASANUTLIN
     Dosage: RECENT DOSE PRIOR  HAEMORRHOIDS THROMBOSED 09DEC16, (200MG) PRIOR TO HERPES ZOSER 26JUN17
     Route: 048
  29. ZELITREX [Concomitant]
     Active Substance: VALACYCLOVIR HYDROCHLORIDE
     Indication: HERPES ZOSTER
     Route: 048
     Dates: start: 201707
  30. METFORMINE [Concomitant]
     Active Substance: METFORMIN HYDROCHLORIDE
     Indication: HYPERGLYCAEMIA
     Route: 048
     Dates: start: 201704
  31. IMODIUM [Concomitant]
     Active Substance: LOPERAMIDE HYDROCHLORIDE
     Indication: DIARRHOEA
     Route: 048
     Dates: start: 20160926, end: 20160927
  32. VENETOCLAX. [Suspect]
     Active Substance: VENETOCLAX
     Dosage: RECENT DOSE(200MG) PRIOR TO SEPTICEMIA 10NOV17
     Route: 048
  33. IDASANUTLIN. [Suspect]
     Active Substance: IDASANUTLIN
     Indication: ACUTE MYELOID LEUKAEMIA
     Dosage: DAYS 1?5 OF EACH 28 DAY CYCLE;(400MG) PRIOR TO TLS + INTERMITTENT THROMBOCYTOPENIA 27SEP16
     Route: 048
     Dates: start: 20160926
  34. INSULINE [Concomitant]
     Active Substance: INSULIN NOS
     Indication: HYPERGLYCAEMIA
     Route: 058
     Dates: start: 20160927
  35. MEROPENEM. [Concomitant]
     Active Substance: MEROPENEM
     Indication: PNEUMONIA
     Route: 042
     Dates: start: 20161022, end: 20161023
  36. WELLVONE [Concomitant]
     Active Substance: ATOVAQUONE
     Indication: BACTERIAL INFECTION
     Route: 048
     Dates: start: 20160928, end: 201610
  37. SKENAN [Concomitant]
     Active Substance: MORPHINE SULFATE
     Indication: CHEST PAIN
     Route: 048
     Dates: start: 20161019
  38. PREGABALINE [Concomitant]
     Active Substance: PREGABALIN
     Indication: ANXIETY
     Route: 048
     Dates: start: 20171115
  39. PARACETAMOL [Concomitant]
     Active Substance: ACETAMINOPHEN
     Indication: PNEUMONIA
     Route: 042
     Dates: start: 20161021
  40. AMOXICILLINE [Concomitant]
     Active Substance: AMOXICILLIN
     Indication: BACTERIAL INFECTION
     Route: 048
     Dates: start: 20170509, end: 20170514
  41. AUGMENTIN [Concomitant]
     Active Substance: AMOXICILLIN\CLAVULANATE POTASSIUM
     Indication: BACTERIAL INFECTION
     Route: 048
     Dates: start: 20161011, end: 20161021
  42. INEXIUM [Concomitant]
     Active Substance: ESOMEPRAZOLE
     Indication: GASTRITIS
     Route: 048
     Dates: start: 20160926, end: 20161004
  43. OFLOCET [Concomitant]
     Active Substance: OFLOXACIN
     Indication: BACTERIAL INFECTION
     Route: 048
     Dates: start: 20161011, end: 20161021
  44. CIPROFLOXACINE [Concomitant]
     Active Substance: CIPROFLOXACIN
     Indication: PNEUMONIA
     Route: 048
     Dates: start: 20161022, end: 20161023
  45. CIPROFLOXACINE [Concomitant]
     Active Substance: CIPROFLOXACIN
     Dates: start: 20171001, end: 20171012
  46. LASILIX [Concomitant]
     Active Substance: FUROSEMIDE
     Route: 048
     Dates: start: 20171115

REACTIONS (7)
  - Septic shock [Recovered/Resolved]
  - Sepsis [Recovered/Resolved]
  - Haemorrhoids thrombosed [Recovered/Resolved]
  - Thrombocytopenia [Recovered/Resolved]
  - Tumour lysis syndrome [Recovered/Resolved]
  - Herpes zoster [Recovered/Resolved]
  - Acute kidney injury [Not Recovered/Not Resolved]

NARRATIVE: CASE EVENT DATE: 20160927
